FAERS Safety Report 8007925-9 (Version None)
Quarter: 2011Q4

REPORT INFORMATION
  Report Type: 
  Country: None (occurrence: None)
  Receive Date: 20111227
  Receipt Date: 20111219
  Transmission Date: 20120403
  Serious: Yes (Other)
  Sender: FDA-Public Use
  Company Number: US-BAYER-2011-122036

PATIENT
  Age: 25 Year
  Sex: Female

DRUGS (2)
  1. YAZ [Suspect]
     Dosage: UNK
     Dates: start: 20090825, end: 20100302
  2. YASMIN [Suspect]
     Dosage: UNK
     Dates: start: 20081216, end: 20090825

REACTIONS (2)
  - CHOLECYSTECTOMY [None]
  - INJURY [None]
